FAERS Safety Report 6666196-6 (Version None)
Quarter: 2010Q1

REPORT INFORMATION
  Report Type: 
  Country: None (occurrence: None)
  Receive Date: 20100331
  Receipt Date: 20100322
  Transmission Date: 20100710
  Serious: No
  Sender: FDA-Public Use
  Company Number: SP1201000088

PATIENT
  Age: 42 Year
  Sex: Female

DRUGS (1)
  1. AMITIZA [Suspect]
     Indication: CONSTIPATION
     Dosage: PM, ORAL
     Route: 048

REACTIONS (2)
  - CONSTIPATION [None]
  - DYSPNOEA [None]
